FAERS Safety Report 5074146-1 (Version None)
Quarter: 2006Q3

REPORT INFORMATION
  Report Type: 
  Country: None (occurrence: None)
  Receive Date: 20060803
  Receipt Date: 20060724
  Transmission Date: 20061208
  Serious: Yes (Death)
  Sender: FDA-Public Use
  Company Number: 2006064048

PATIENT
  Age: 66 Year
  Sex: Male
  Weight: 61 kg

DRUGS (15)
  1. INSPRA [Suspect]
     Indication: CARDIAC FAILURE
     Dosage: 12.5 MG (12.5 MG, DAILY: EVERY DAY), ORAL
     Route: 048
     Dates: start: 20060401
  2. BUMETANIDE [Concomitant]
  3. BENDROFLUMETHIAZIDE (BENDROFLUMETHIAZIDE) [Concomitant]
  4. ENALAPRIL MALEATE [Concomitant]
  5. NICORANDIL (NICORANDIL) [Concomitant]
  6. CLOPIDOGREL [Concomitant]
  7. CARVEDILOL [Concomitant]
  8. SERETIDE (FLUTCIASONE PROPIONATE, SALMETEROL XINAFOATE) [Concomitant]
  9. SALBUTAMOL (SALBUTAMOL) [Concomitant]
  10. NOVOMIX (INSULIN ASPART) [Concomitant]
  11. DOMPERIDONE (DOMPERIDONE) [Concomitant]
  12. CHLORPHENAMINE MALEATE (CHLORPHENAMINE MALEATE) [Concomitant]
  13. ATORVASTATIN CALCIUM [Concomitant]
  14. RABEPRAZOLE (RABEPRAZOLE) [Concomitant]
  15. GAVISCON [Concomitant]

REACTIONS (8)
  - CARDIAC ARREST [None]
  - CARDIAC DISORDER [None]
  - FALL [None]
  - HYPERTENSION [None]
  - HYPOAESTHESIA [None]
  - HYPOXIC ENCEPHALOPATHY [None]
  - PARAESTHESIA [None]
  - VENTRICULAR FIBRILLATION [None]
